FAERS Safety Report 5576950-X (Version None)
Quarter: 2007Q4

REPORT INFORMATION
  Report Type: 
  Country: None (occurrence: None)
  Receive Date: 20071130
  Receipt Date: 20070926
  Transmission Date: 20080405
  Serious: No
  Sender: FDA-Public Use
  Company Number: US200709006535

PATIENT
  Age: 72 Year
  Sex: Female
  Weight: 127 kg

DRUGS (1)
  1. BYETTA [Suspect]
     Indication: WEIGHT DECREASED
     Dosage: 5 UG, 2/D, SUBCUTANEOUS
     Route: 058
     Dates: start: 20070201

REACTIONS (7)
  - CONSTIPATION [None]
  - DISTURBANCE IN ATTENTION [None]
  - INFLUENZA [None]
  - LOCALISED INFECTION [None]
  - LYMPHOEDEMA [None]
  - NAUSEA [None]
  - SOMNOLENCE [None]
